FAERS Safety Report 15934305 (Version 2)
Quarter: 2019Q1

REPORT INFORMATION
  Report Type: Spontaneous
  Country: US (occurrence: US)
  Receive Date: 20190207
  Receipt Date: 20190220
  Transmission Date: 20190417
  Serious: Yes (Other)
  Sender: FDA-Public Use
  Company Number: US-ASTRAZENECA-2018SF13551

PATIENT
  Age: 16290 Day
  Sex: Female
  Weight: 55.7 kg

DRUGS (29)
  1. CARISOPRODOL. [Concomitant]
     Active Substance: CARISOPRODOL
     Route: 048
     Dates: start: 20090729
  2. TETRACYCLINE [Concomitant]
     Active Substance: TETRACYCLINE
     Route: 048
     Dates: start: 20091204
  3. CITALOPRAM [Concomitant]
     Active Substance: CITALOPRAM HYDROBROMIDE
     Route: 048
     Dates: start: 20110406
  4. DICYCLOMINE [Concomitant]
     Active Substance: DICYCLOMINE HYDROCHLORIDE
     Route: 048
  5. ALBUTEROL. [Concomitant]
     Active Substance: ALBUTEROL
  6. PREDNISONE. [Concomitant]
     Active Substance: PREDNISONE
     Route: 048
  7. NEXIUM [Suspect]
     Active Substance: ESOMEPRAZOLE MAGNESIUM
     Route: 048
     Dates: start: 20090713
  8. METRONIDAZOLE. [Concomitant]
     Active Substance: METRONIDAZOLE
     Dosage: 0.75%
     Route: 065
     Dates: start: 20090612
  9. ACETAMI/CODEIN [Concomitant]
     Dosage: 30-300 MG
     Route: 048
  10. ALLEGRA [Concomitant]
     Active Substance: FEXOFENADINE HYDROCHLORIDE
     Route: 048
  11. NASONEX [Concomitant]
     Active Substance: MOMETASONE FUROATE
     Dosage: 50 MCG/AC
     Route: 047
     Dates: start: 20090701
  12. NEXIUM [Suspect]
     Active Substance: ESOMEPRAZOLE MAGNESIUM
     Route: 048
     Dates: start: 200907, end: 201503
  13. PREVACID [Suspect]
     Active Substance: LANSOPRAZOLE
     Route: 048
  14. PROMETHAZINE [Concomitant]
     Active Substance: PROMETHAZINE\PROMETHAZINE HYDROCHLORIDE
     Route: 048
     Dates: start: 20090813
  15. PONSTEL [Concomitant]
     Active Substance: MEFENAMIC ACID
     Route: 048
     Dates: start: 20090701
  16. MONTELUKAST [Concomitant]
     Active Substance: MONTELUKAST SODIUM
     Route: 048
  17. PANTOPRAZOLE [Concomitant]
     Active Substance: PANTOPRAZOLE
     Route: 048
     Dates: start: 20151001
  18. HYDROCOD/ACETA [Concomitant]
     Dosage: 5-500 MG
     Route: 048
     Dates: start: 20090729
  19. AMOXICILLIN. [Concomitant]
     Active Substance: AMOXICILLIN
     Route: 048
  20. TRAMADOL. [Concomitant]
     Active Substance: TRAMADOL
     Route: 048
     Dates: start: 20150529
  21. IBUPROFEN. [Concomitant]
     Active Substance: IBUPROFEN
     Route: 048
  22. NEXIUM [Suspect]
     Active Substance: ESOMEPRAZOLE MAGNESIUM
     Route: 048
     Dates: start: 20090713, end: 20150306
  23. FEXOFENADINE [Concomitant]
     Active Substance: FEXOFENADINE\FEXOFENADINE HYDROCHLORIDE
     Route: 048
     Dates: start: 20090701
  24. VESICARE [Concomitant]
     Active Substance: SOLIFENACIN SUCCINATE
     Route: 048
  25. PREVACID [Suspect]
     Active Substance: LANSOPRAZOLE
     Route: 048
     Dates: start: 200907, end: 201503
  26. CYCLOBENZAPRINE. [Concomitant]
     Active Substance: CYCLOBENZAPRINE
     Route: 048
     Dates: start: 20090903
  27. LORAZEPAM. [Concomitant]
     Active Substance: LORAZEPAM
     Route: 048
     Dates: start: 20100111
  28. ONDANSETRON [Concomitant]
     Active Substance: ONDANSETRON
     Route: 048
  29. LIMBITROL [Concomitant]
     Active Substance: AMITRIPTYLINE\CHLORDIAZEPOXIDE
     Route: 048

REACTIONS (2)
  - Chronic kidney disease [Unknown]
  - Renal injury [Unknown]

NARRATIVE: CASE EVENT DATE: 20091204
